FAERS Safety Report 7200293-1 (Version None)
Quarter: 2010Q4

REPORT INFORMATION
  Report Type: 
  Country: None (occurrence: None)
  Receive Date: 20101228
  Receipt Date: 20101216
  Transmission Date: 20110411
  Serious: Yes (Hospitalization)
  Sender: FDA-Public Use
  Company Number: B0689667A

PATIENT
  Age: 60 Year
  Sex: Female

DRUGS (9)
  1. DEROXAT [Suspect]
     Indication: PRODUCT USED FOR UNKNOWN INDICATION
     Dosage: 20MG PER DAY
     Route: 048
  2. RAPAMUNE [Suspect]
     Indication: RENAL TRANSPLANT
     Route: 048
     Dates: start: 20040316, end: 20101112
  3. MEDROL [Suspect]
     Indication: PRODUCT USED FOR UNKNOWN INDICATION
     Dosage: 2MG PER DAY
     Route: 065
  4. TAREG [Suspect]
     Indication: HYPERTENSION
     Dosage: 40MG PER DAY
     Route: 048
  5. SPECIAFOLDINE [Suspect]
     Indication: PRODUCT USED FOR UNKNOWN INDICATION
     Dosage: 5MG PER DAY
     Route: 048
  6. TENORMIN [Suspect]
     Indication: HYPERTENSION
     Dosage: 25MG PER DAY
     Route: 048
  7. VASTEN [Suspect]
     Indication: HYPERCHOLESTEROLAEMIA
     Dosage: 10MG PER DAY
     Route: 048
  8. CELLCEPT [Suspect]
     Indication: RENAL TRANSPLANT
     Dosage: 500MG THREE TIMES PER DAY
     Route: 048
     Dates: start: 20040322
  9. CYCLOSPORINE [Concomitant]
     Indication: RENAL TRANSPLANT
     Dosage: 75MG TWICE PER DAY
     Route: 065

REACTIONS (5)
  - ASTHENIA [None]
  - GENERAL PHYSICAL HEALTH DETERIORATION [None]
  - INTERSTITIAL LUNG DISEASE [None]
  - PYREXIA [None]
  - WEIGHT DECREASED [None]
